FAERS Safety Report 8541035-7 (Version None)
Quarter: 2012Q3

REPORT INFORMATION
  Report Type: 
  Country: None (occurrence: None)
  Receive Date: 20120726
  Receipt Date: 20120716
  Transmission Date: 20120928
  Serious: Yes (Other)
  Sender: FDA-Public Use
  Company Number: US-CELGENEUS-163-21880-12043255

PATIENT
  Sex: Female

DRUGS (9)
  1. REVLIMID [Suspect]
     Dosage: 25 MILLIGRAM
     Route: 048
     Dates: start: 20071004
  2. TRAZODONE HCL [Concomitant]
     Indication: INSOMNIA
     Dosage: 50 MILLIGRAM
     Route: 065
     Dates: start: 20070201
  3. ASPIRIN [Concomitant]
     Indication: ROUTINE HEALTH MAINTENANCE
     Dosage: 81 MILLIGRAM
     Route: 065
     Dates: start: 20070424
  4. LEVOTHYROXINE SODIUM [Concomitant]
     Indication: HYPOTHYROIDISM
     Dosage: 1 MILLIGRAM
     Route: 065
     Dates: start: 20050101
  5. REVLIMID [Suspect]
     Dosage: 20 MILLIGRAM
     Route: 048
     Dates: end: 20110713
  6. WHOLE BLOOD [Concomitant]
     Dosage: 2 UNITS
     Route: 041
     Dates: start: 20120413
  7. TEMAZEPAM [Concomitant]
     Indication: INSOMNIA
     Dosage: 30 MILLIGRAM
     Route: 065
     Dates: start: 20070101
  8. METOPROLOL SUCCINATE [Concomitant]
     Indication: MYOCARDIAL INFARCTION
     Dosage: 25 MILLIGRAM
     Route: 065
     Dates: start: 20070424
  9. BACTRIM [Concomitant]
     Indication: PROPHYLAXIS
     Dosage: 1 TABLET
     Route: 048
     Dates: start: 20061130

REACTIONS (3)
  - HODGKIN'S DISEASE RECURRENT [None]
  - MYELODYSPLASTIC SYNDROME [None]
  - FATIGUE [None]
